FAERS Safety Report 5931121-X (Version None)
Quarter: 2008Q4

REPORT INFORMATION
  Report Type: 
  Country: None (occurrence: None)
  Receive Date: 20081027
  Receipt Date: 20081016
  Transmission Date: 20090506
  Serious: Yes (Hospitalization, Other)
  Sender: FDA-Public Use
  Company Number: PHHY2008FR24939

PATIENT
  Sex: Male

DRUGS (4)
  1. TEGRETOL [Suspect]
     Indication: CONVULSION
     Dosage: 400 MG, BID
     Route: 048
     Dates: start: 20080624, end: 20080817
  2. DEPAKENE [Concomitant]
     Indication: EPILEPSY
     Dosage: 1000 MG, BID
     Route: 048
     Dates: end: 20080817
  3. SERETIDE [Concomitant]
     Indication: CHRONIC OBSTRUCTIVE PULMONARY DISEASE
     Dosage: 1 DF, BID
  4. ARIXTRA [Concomitant]
     Dosage: 1 DF, QD
     Route: 058

REACTIONS (9)
  - CHRONIC OBSTRUCTIVE PULMONARY DISEASE [None]
  - CYTOLYTIC HEPATITIS [None]
  - DRUG RASH WITH EOSINOPHILIA AND SYSTEMIC SYMPTOMS [None]
  - EOSINOPHILIA [None]
  - HYPERTHERMIA [None]
  - RASH [None]
  - RASH GENERALISED [None]
  - THROMBOCYTOPENIA [None]
  - TRANSAMINASES INCREASED [None]
